FAERS Safety Report 17396148 (Version 1)
Quarter: 2020Q1

REPORT INFORMATION
  Report Type: Spontaneous
  Country: US (occurrence: US)
  Receive Date: 20200124
  Receipt Date: 20200124
  Transmission Date: 20200409
  Serious: No
  Sender: FDA-Public Use
  Company Number: None

PATIENT
  Age: 67 Year
  Sex: Male
  Weight: 80.74 kg

DRUGS (1)
  1. ALFA 2 INTERFERON 2B [Suspect]
     Active Substance: INTERFERON ALFA-2B
     Dosage: ?          OTHER DOSE:780 MU;?
     Dates: end: 20141006

REACTIONS (1)
  - Irritability [None]

NARRATIVE: CASE EVENT DATE: 20140505
